FAERS Safety Report 6755711-X (Version None)
Quarter: 2010Q2

REPORT INFORMATION
  Report Type: 
  Country: None (occurrence: None)
  Receive Date: 20100604
  Receipt Date: 20100525
  Transmission Date: 20101027
  Serious: Yes (Other)
  Sender: FDA-Public Use
  Company Number: GB-PFIZER INC-2010065861

PATIENT
  Age: 66 Year
  Sex: Female

DRUGS (4)
  1. AROMASIN [Suspect]
  2. PROPRANOLOL [Concomitant]
  3. TEMAZEPAM [Concomitant]
  4. TRAZODONE [Concomitant]

REACTIONS (4)
  - DEPRESSED MOOD [None]
  - DEPRESSION [None]
  - HEADACHE [None]
  - SINUS DISORDER [None]
